FAERS Safety Report 7959191-8 (Version None)
Quarter: 2011Q4

REPORT INFORMATION
  Report Type: 
  Country: None (occurrence: None)
  Receive Date: 20111206
  Receipt Date: 20111123
  Transmission Date: 20120403
  Serious: Yes (Hospitalization)
  Sender: FDA-Public Use
  Company Number: US-UCBSA-046594

PATIENT
  Age: 52 Year
  Sex: Male
  Weight: 118 kg

DRUGS (37)
  1. CIMZIA [Suspect]
     Route: 058
     Dates: start: 20100609, end: 20100915
  2. ZYVOX [Concomitant]
     Dosage: STOP DATE WAS TO BE ON 29/OCT/2011
     Route: 048
  3. NOVOLOG [Concomitant]
     Dosage: 100MG UNIT/ML VIAL .01ML=1UNIT
     Route: 058
  4. VANCOMYCIN [Concomitant]
     Dates: end: 20110101
  5. OXACILLIN [Concomitant]
     Dates: end: 20110101
  6. JANUVIA [Concomitant]
     Dosage: 100MG
  7. CETIRIZINE HCL [Concomitant]
     Dosage: 10MG
  8. VENTOLIN HFA [Concomitant]
  9. ONDASETRON [Concomitant]
     Dosage: 8MG
  10. CUBICIN [Concomitant]
     Dosage: END DATE TO BE 19/DEC/2011
     Route: 042
     Dates: start: 20110101
  11. NEURONTIN [Concomitant]
     Dosage: 300MG=1CAPSULE
     Route: 048
     Dates: end: 20110101
  12. HYDRALAZINE HCL [Concomitant]
     Dosage: 25MG; DOSAGE: 37.5MG=1.5 TAB
     Route: 048
  13. FLUTICASONE PROPIONATE [Concomitant]
  14. LISINOPRIL AND HYDROCHLOROTHIAZIDE [Concomitant]
  15. OXYCONTIN [Concomitant]
     Dosage: 20MG
  16. PREDNISONE TAB [Concomitant]
     Indication: CROHN'S DISEASE
     Dosage: 10MG DAILY
     Route: 048
     Dates: start: 20080201, end: 20111014
  17. LEVEMIR [Concomitant]
     Dosage: EACH NIGHT AT BEDTIME; 100UNITS/ML VIAL (10U=0.1ML)
     Route: 058
  18. NEURONTIN [Concomitant]
     Dates: start: 20110101
  19. RENAGEL [Concomitant]
     Dosage: 1600MG=2 TAB; WITH MEALS
     Route: 048
  20. INTEGRA [Concomitant]
     Dosage: 125MG
  21. OXYCODONE HCL AND ACETAMINOPHEN [Concomitant]
     Dosage: 10/325
  22. CIMZIA [Suspect]
     Indication: CROHN'S DISEASE
     Route: 058
     Dates: start: 20110111, end: 20110924
  23. HOME OXYGEN [Concomitant]
     Dosage: DOSAGE:1
  24. CUBICIN [Concomitant]
     Dosage: 500MG;DOSAGE: 720MG  OVER 30MIN EVERY DAY FOR 4 WEEKS
     Route: 042
     Dates: end: 20110101
  25. PROMETHAZINE [Concomitant]
  26. PREDNISONE TAB [Concomitant]
     Dosage: 5MG DAILY
     Route: 048
     Dates: start: 20111001
  27. TRILIPIX DR [Concomitant]
     Route: 048
  28. METOPROLOL TARTRATE [Concomitant]
     Dosage: 25MG; DOSAGE:100MG=4 TAB
     Route: 048
  29. AVANDARYL [Concomitant]
     Dosage: 4MG-1MG
     Route: 048
  30. CIMZIA [Suspect]
     Route: 058
     Dates: start: 20100428, end: 20100526
  31. LEVAQUIN [Concomitant]
     Dosage: END DATE TO BE 27/OCT/2011
     Route: 048
  32. PERCOCET [Concomitant]
     Dosage: 5MG-325MG; 1PO
     Route: 048
  33. OXYCODONE HCL [Concomitant]
     Dosage: EVERY 6-8 HOURS AS NEEDED
     Route: 048
  34. ACETAMINOPHEN [Concomitant]
     Indication: CROHN'S DISEASE
  35. VICTOZA [Concomitant]
     Dosage: 3-PAK; 0.6MG/0.1MG/3ML PEN
     Route: 058
  36. FLONASE [Concomitant]
     Dosage: 0.05%; 1SPRAY=50MCG
     Route: 045
  37. FUROSEMIDE [Concomitant]
     Dosage: 80MG=1 TAB
     Route: 048

REACTIONS (2)
  - STAPHYLOCOCCAL INFECTION [None]
  - ACUTE RESPIRATORY DISTRESS SYNDROME [None]
